FAERS Safety Report 4318756-5 (Version None)
Quarter: 2004Q1

REPORT INFORMATION
  Report Type: 
  Country: None (occurrence: None)
  Receive Date: 20040315
  Receipt Date: 20040303
  Transmission Date: 20041129
  Serious: Yes (Disabling)
  Sender: FDA-Public Use
  Company Number: JP-JNJFOC-20040103369

PATIENT
  Age: 59 Year
  Sex: Female
  Weight: 33 kg

DRUGS (10)
  1. REMICADE [Suspect]
     Indication: RHEUMATOID ARTHRITIS
     Dosage: 3 MG/KG, 1 IN 1 AS NECESSARY, INTRAVENOUS DRIP
     Route: 041
     Dates: start: 20031217, end: 20031217
  2. REMICADE [Suspect]
     Indication: RHEUMATOID ARTHRITIS
     Dosage: 3 MG/KG, 1 IN 1 AS NECESSARY, INTRAVENOUS DRIP
     Route: 041
     Dates: start: 20031203
  3. RHEUMATREX [Concomitant]
  4. PREDNISOLONE [Concomitant]
  5. VOLTAREN [Concomitant]
  6. MOHRUS TAPE (KETOPROFEN) [Concomitant]
  7. D-ALPHA (ALL OTHER THERAPEUTIC PRODUCTS) [Concomitant]
  8. ZANTAC [Concomitant]
  9. DIAZEPAM [Concomitant]
  10. RENDORMIN (ALL OTHER THERAPEUTIC PRODUCTS) [Concomitant]

REACTIONS (3)
  - ACETABULUM FRACTURE [None]
  - FEMUR FRACTURE [None]
  - JOINT DESTRUCTION [None]
